FAERS Safety Report 22631683 (Version 1)
Quarter: 2023Q2

REPORT INFORMATION
  Report Type: Report from Study
  Country: US (occurrence: US)
  Receive Date: 20230623
  Receipt Date: 20230623
  Transmission Date: 20230722
  Serious: Yes (Other)
  Sender: FDA-Public Use
  Company Number: US-002147023-NVSC2023US136194

PATIENT
  Sex: Female

DRUGS (13)
  1. METHOTREXATE [Suspect]
     Active Substance: METHOTREXATE
     Indication: Psoriasis
     Dosage: UNK
     Route: 065
  2. METHOTREXATE [Suspect]
     Active Substance: METHOTREXATE
     Indication: Psoriatic arthropathy
  3. OMEPRAZOLE [Suspect]
     Active Substance: OMEPRAZOLE
     Indication: Psoriatic arthropathy
     Dosage: UNK
     Route: 065
  4. OMEPRAZOLE [Suspect]
     Active Substance: OMEPRAZOLE
     Indication: Psoriasis
  5. OMEGA 3 [Suspect]
     Active Substance: CAPSAICIN
     Indication: Psoriatic arthropathy
     Dosage: UNK
     Route: 065
  6. OMEGA 3 [Suspect]
     Active Substance: CAPSAICIN
     Indication: Psoriasis
  7. VITAMINS [Suspect]
     Active Substance: VITAMINS
     Indication: Psoriatic arthropathy
     Dosage: UNK
     Route: 065
  8. VITAMINS [Suspect]
     Active Substance: VITAMINS
     Indication: Psoriasis
  9. MAGNESIUM [Suspect]
     Active Substance: MAGNESIUM
     Indication: Psoriatic arthropathy
     Dosage: UNK
     Route: 065
  10. VITAMIN C [Suspect]
     Active Substance: ASCORBIC ACID
     Indication: Psoriatic arthropathy
     Dosage: UNK
     Route: 065
  11. VITAMIN C [Suspect]
     Active Substance: ASCORBIC ACID
     Indication: Psoriasis
  12. VITAMIN D3 [Suspect]
     Active Substance: CHOLECALCIFEROL
     Indication: Psoriatic arthropathy
     Dosage: UNK
     Route: 065
  13. VITAMIN D3 [Suspect]
     Active Substance: CHOLECALCIFEROL
     Indication: Psoriasis

REACTIONS (5)
  - Psoriasis [Unknown]
  - Psoriatic arthropathy [Unknown]
  - Arthralgia [Unknown]
  - Rash [Unknown]
  - Treatment failure [Unknown]
